FAERS Safety Report 6842089-6 (Version None)
Quarter: 2010Q3

REPORT INFORMATION
  Report Type: 
  Country: None (occurrence: None)
  Receive Date: 20100714
  Receipt Date: 20070720
  Transmission Date: 20110219
  Serious: No
  Sender: FDA-Public Use
  Company Number: US-PFIZER INC-2007061806

PATIENT
  Sex: Female
  Weight: 51.363 kg

DRUGS (7)
  1. CHANTIX [Suspect]
     Indication: SMOKING CESSATION THERAPY
     Route: 048
     Dates: start: 20070712
  2. PROZAC [Concomitant]
  3. HYDROCODONE [Concomitant]
  4. LASIX [Concomitant]
  5. PROMETHAZINE [Concomitant]
  6. BENADRYL [Concomitant]
  7. VALIUM [Concomitant]

REACTIONS (6)
  - DECREASED APPETITE [None]
  - HEADACHE [None]
  - NAUSEA [None]
  - NIGHTMARE [None]
  - POOR QUALITY SLEEP [None]
  - VISION BLURRED [None]
